FAERS Safety Report 21524246 (Version 1)
Quarter: 2022Q4

REPORT INFORMATION
  Report Type: Report from Study
  Country: AR (occurrence: AR)
  Receive Date: 20221029
  Receipt Date: 20221029
  Transmission Date: 20230113
  Serious: Yes (Other)
  Sender: FDA-Public Use
  Company Number: AR-NOVARTISPH-NVSC2022AR184506

PATIENT
  Age: 67 Year
  Sex: Female

DRUGS (1)
  1. COSENTYX [Suspect]
     Active Substance: SECUKINUMAB
     Indication: Psoriasis
     Dosage: 300 MG, QMO
     Route: 058
     Dates: start: 20120101

REACTIONS (5)
  - Foot deformity [Unknown]
  - Gastric disorder [Unknown]
  - Skin hypertrophy [Unknown]
  - Sensitive skin [Unknown]
  - Pain [Unknown]

NARRATIVE: CASE EVENT DATE: 20220701
